FAERS Safety Report 10162838 (Version 5)
Quarter: 2014Q3

REPORT INFORMATION
  Report Type: Spontaneous
  Country: US (occurrence: US)
  Receive Date: 20140509
  Receipt Date: 20140828
  Transmission Date: 20150326
  Serious: Yes (Disabling)
  Sender: FDA-Public Use
  Company Number: US-009507513-1109USA02520

PATIENT
  Sex: Male
  Weight: 81.63 kg

DRUGS (2)
  1. PROPECIA [Suspect]
     Active Substance: FINASTERIDE
     Indication: ANDROGENETIC ALOPECIA
     Dosage: 1 MG, QD
     Route: 048
     Dates: start: 199905, end: 2008
  2. PROPECIA [Suspect]
     Active Substance: FINASTERIDE
     Indication: ALOPECIA

REACTIONS (13)
  - Emotional distress [Unknown]
  - Sexual dysfunction [Unknown]
  - Diverticulitis [Unknown]
  - Hepatomegaly [Unknown]
  - Depression [Unknown]
  - Blood glucose increased [Unknown]
  - Libido decreased [Unknown]
  - Weight increased [Unknown]
  - Intervertebral disc protrusion [Unknown]
  - Oesophageal disorder [Unknown]
  - Diverticulum [Unknown]
  - Anxiety [Unknown]
  - Erectile dysfunction [Unknown]

NARRATIVE: CASE EVENT DATE: 199908
